FAERS Safety Report 9762812 (Version 1)
Quarter: 2013Q4

REPORT INFORMATION
  Report Type: Report from Study
  Country: DE (occurrence: DE)
  Receive Date: 20131216
  Receipt Date: 20131216
  Transmission Date: 20140711
  Serious: Yes (Other)
  Sender: FDA-Public Use
  Company Number: DE-ABBVIE-13P-062-1178232-00

PATIENT
  Age: 42 Year
  Sex: Male
  Weight: 94 kg

DRUGS (2)
  1. HUMIRA [Suspect]
     Indication: ANKYLOSING SPONDYLITIS
     Route: 058
     Dates: start: 201004, end: 201310
  2. HUMIRA [Suspect]
     Route: 058
     Dates: start: 2013

REACTIONS (2)
  - Thrombophlebitis [Recovered/Resolved]
  - Deep vein thrombosis [Recovered/Resolved]
